FAERS Safety Report 13255748 (Version 1)
Quarter: 2017Q1

REPORT INFORMATION
  Report Type: Spontaneous
  Country: US (occurrence: US)
  Receive Date: 20170218
  Receipt Date: 20170218
  Transmission Date: 20170428
  Serious: Yes (Disabling)
  Sender: FDA-Public Use
  Company Number: None

PATIENT
  Age: 78 Year
  Sex: Female
  Weight: 85.5 kg

DRUGS (6)
  1. HUMALOG [Concomitant]
     Active Substance: INSULIN LISPRO
  2. LANTUS SOLOSTAR/INSULIN GLARGINE [Concomitant]
  3. TOPIRAMATE 25 MG TABLET CIP [Suspect]
     Active Substance: TOPIRAMATE
     Indication: MIGRAINE
     Dates: start: 20170111, end: 20170120
  4. SOLN (INSULIN LISPRO (HUMAN) [Concomitant]
  5. VASOTEC (ENALAPRIL MALEATE) [Concomitant]
  6. NORVASC  (AMLODIPINE BESYLATE) HUMUALOG KWIKPEN /ML SOLN (INSULIN LISPRO (HUMAN) [Concomitant]

REACTIONS (10)
  - Nightmare [None]
  - Abdominal pain upper [None]
  - Mental impairment [None]
  - Condition aggravated [None]
  - Fall [None]
  - Headache [None]
  - Ocular hyperaemia [None]
  - Dizziness [None]
  - Nausea [None]
  - Hallucination [None]

NARRATIVE: CASE EVENT DATE: 20170119
